FAERS Safety Report 8776552 (Version 3)
Quarter: 2012Q4

REPORT INFORMATION
  Report Type: Report from Study
  Country: JP (occurrence: JP)
  Receive Date: 20120910
  Receipt Date: 20121130
  Transmission Date: 20130627
  Serious: Yes (Hospitalization)
  Sender: FDA-Public Use
  Company Number: JP-VERTEX PHARMACEUTICAL INC.-AE-2012-011233

PATIENT
  Age: 64 Year
  Sex: Female

DRUGS (16)
  1. VX-950 (TELAPREVIR) [Suspect]
     Indication: CHRONIC HEPATITIS C
     Dosage: 2250 mg, qd
     Route: 048
     Dates: start: 20120517, end: 20120525
  2. VX-950 (TELAPREVIR) [Suspect]
     Dosage: 2250 mg, qd
     Route: 048
  3. VX-950 (TELAPREVIR) [Suspect]
     Dosage: 1500 mg, qd
     Route: 048
     Dates: start: 20120718, end: 20120726
  4. VX-950 (TELAPREVIR) [Suspect]
     Dosage: 2250 mg, qd
     Route: 048
     Dates: end: 20120727
  5. REBETOL [Suspect]
     Indication: CHRONIC HEPATITIS C
     Dosage: 600 mg, qd
     Route: 048
     Dates: start: 20120517, end: 20120613
  6. REBETOL [Suspect]
     Dosage: 400 mg, qd
     Route: 048
     Dates: start: 20120614, end: 20120628
  7. REBETOL [Suspect]
     Dosage: 400 mg, qd
     Route: 048
     Dates: end: 20120802
  8. PEGINTRON                          /01543001/ [Suspect]
     Indication: CHRONIC HEPATITIS C
     Dosage: 1.5 ?g/kg, week
     Route: 058
     Dates: start: 20120517, end: 20120802
  9. PEGINTRON                          /01543001/ [Suspect]
     Dosage: 1.5 ?g/kg, week
     Route: 058
     Dates: start: 20120809, end: 20120920
  10. PEGINTRON                          /01543001/ [Suspect]
     Dosage: 0.75 ?g/kg, week
     Route: 058
     Dates: start: 20120927, end: 20121025
  11. GASMOTIN [Concomitant]
     Dosage: 15 mg, qd
     Route: 048
     Dates: start: 20120517
  12. NAUZELIN [Concomitant]
     Dosage: 30 mg, qd
     Route: 048
     Dates: start: 20120517
  13. ACINON [Concomitant]
     Dosage: 150 mg, qd
     Route: 048
     Dates: start: 20120517
  14. MAINTATE [Concomitant]
     Dosage: 5 mg, qd
     Route: 048
     Dates: start: 20120720
  15. GLACTIV [Concomitant]
     Dosage: 50 mg, qd
     Route: 048
     Dates: start: 20120823
  16. SEIBULE [Concomitant]
     Dosage: 150 mg, qd
     Route: 048
     Dates: start: 20120823

REACTIONS (7)
  - Diabetes mellitus [Recovered/Resolved]
  - Hyperglycaemia [Not Recovered/Not Resolved]
  - Decreased appetite [Not Recovered/Not Resolved]
  - Malaise [Not Recovered/Not Resolved]
  - Rash [Recovered/Resolved]
  - Drug eruption [Not Recovered/Not Resolved]
  - Haemoglobin decreased [Not Recovered/Not Resolved]
